FAERS Safety Report 23535557 (Version 1)
Quarter: 2024Q1

REPORT INFORMATION
  Report Type: Spontaneous
  Country: ZA (occurrence: None)
  Receive Date: 20240218
  Receipt Date: 20240218
  Transmission Date: 20240410
  Serious: Yes (Hospitalization)
  Sender: FDA-Public Use
  Company Number: 2024A035094

PATIENT
  Age: 85 Year
  Sex: Female

DRUGS (4)
  1. BUDESONIDE\FORMOTEROL FUMARATE DIHYDRATE [Suspect]
     Active Substance: BUDESONIDE\FORMOTEROL FUMARATE DIHYDRATE
     Indication: Asthma
     Dosage: 80 UG/MG, UNKNOWN UNKNOWN
     Route: 055
  2. ENALAPRIL [Concomitant]
     Active Substance: ENALAPRIL
     Indication: Hypertension
     Route: 048
  3. ISMO [Concomitant]
     Active Substance: ISOSORBIDE MONONITRATE
     Indication: Cardiac disorder
     Route: 048
  4. PANTOCID [Concomitant]
     Indication: Ulcer
     Route: 048

REACTIONS (1)
  - Rib fracture [Unknown]
